FAERS Safety Report 7415197-9 (Version None)
Quarter: 2011Q2

REPORT INFORMATION
  Report Type: 
  Country: None (occurrence: None)
  Receive Date: 20110414
  Receipt Date: 20110408
  Transmission Date: 20111010
  Serious: Yes (Death, Other)
  Sender: FDA-Public Use
  Company Number: PHHY2011US06226

PATIENT
  Sex: Female
  Weight: 59.864 kg

DRUGS (1)
  1. EXJADE [Suspect]
     Indication: MYELOFIBROSIS
     Dosage: 1500 MG, DAILY
     Route: 048
     Dates: start: 20080325

REACTIONS (4)
  - MULTI-ORGAN FAILURE [None]
  - AORTIC DISSECTION [None]
  - SYNCOPE [None]
  - DEATH [None]
